FAERS Safety Report 4530830-7 (Version None)
Quarter: 2004Q4

REPORT INFORMATION
  Report Type: 
  Country: None (occurrence: None)
  Receive Date: 20041215
  Receipt Date: 20041201
  Transmission Date: 20050328
  Serious: Yes (Death)
  Sender: FDA-Public Use
  Company Number: 2004UW24608

PATIENT
  Age: 80 Year
  Sex: Female

DRUGS (1)
  1. CRESTOR [Suspect]

REACTIONS (4)
  - ATHEROSCLEROSIS [None]
  - CARDIAC PROCEDURE COMPLICATION [None]
  - EMBOLISM [None]
  - RENAL FAILURE [None]
